FAERS Safety Report 7583460-7 (Version None)
Quarter: 2011Q2

REPORT INFORMATION
  Report Type: 
  Country: None (occurrence: None)
  Receive Date: 20110628
  Receipt Date: 20110628
  Transmission Date: 20111010
  Serious: Yes (Hospitalization)
  Sender: FDA-Public Use
  Company Number: None

PATIENT
  Sex: Female
  Weight: 71.5 kg

DRUGS (10)
  1. BEVACIZUMAB (RHUMAB VEGF) [Suspect]
     Dosage: 1530MG
     Dates: end: 20110607
  2. KLONAPIN [Concomitant]
  3. POTASSIUM [Concomitant]
  4. AMBIEN [Concomitant]
  5. IMODIUM [Concomitant]
  6. 5-FLUOROURACIL (5-FU) [Suspect]
     Dosage: 2580MG
     Dates: end: 20110607
  7. ZOLOFT [Concomitant]
  8. MAGNESIUM CHLORIDE [Concomitant]
  9. OXALIPLATIN (ELOXATIN) [Suspect]
     Dosage: 590MG
     Dates: end: 20110607
  10. LEUCOVORIN CALCIUM [Suspect]
     Dosage: 2880MG
     Dates: end: 20110607

REACTIONS (2)
  - DIARRHOEA [None]
  - HYPOKALAEMIA [None]
